FAERS Safety Report 11213300 (Version 5)
Quarter: 2015Q3

REPORT INFORMATION
  Report Type: Report from Study
  Country: US (occurrence: US)
  Receive Date: 20150623
  Receipt Date: 20150707
  Transmission Date: 20151125
  Serious: Yes (Hospitalization)
  Sender: FDA-Public Use
  Company Number: US-JNJFOC-20150616694

PATIENT
  Age: 19 Year
  Sex: Female
  Weight: 55 kg

DRUGS (19)
  1. FIORICET [Concomitant]
     Active Substance: ACETAMINOPHEN\BUTALBITAL\CAFFEINE
     Route: 065
  2. ETHINYLESTRADIOL [Concomitant]
     Active Substance: ETHINYL ESTRADIOL
     Route: 065
  3. PHENERGAN [Concomitant]
     Active Substance: PROMETHAZINE HYDROCHLORIDE
     Route: 065
  4. HUMIRA [Suspect]
     Active Substance: ADALIMUMAB
     Indication: PRODUCT USED FOR UNKNOWN INDICATION
     Route: 065
     Dates: start: 20140422, end: 2015
  5. CALCIUM WITH VITAMIN D [Concomitant]
     Active Substance: CALCIUM\VITAMIN D
     Route: 065
  6. DESOGESTREL [Concomitant]
     Active Substance: DESOGESTREL
     Route: 065
  7. 6-MERCAPTOPURINE [Concomitant]
     Active Substance: MERCAPTOPURINE
     Route: 065
  8. PLAQUENIL [Concomitant]
     Active Substance: HYDROXYCHLOROQUINE SULFATE
     Route: 065
  9. REMICADE [Suspect]
     Active Substance: INFLIXIMAB
     Indication: INFLAMMATORY BOWEL DISEASE
     Route: 042
     Dates: start: 20090206, end: 20100106
  10. HUMIRA [Suspect]
     Active Substance: ADALIMUMAB
     Indication: PRODUCT USED FOR UNKNOWN INDICATION
     Route: 065
     Dates: start: 20100129
  11. ZYRTEC [Concomitant]
     Active Substance: CETIRIZINE HYDROCHLORIDE
     Route: 065
  12. OXYCODONE [Concomitant]
     Active Substance: OXYCODONE
     Route: 065
  13. ZOFRAN [Concomitant]
     Active Substance: ONDANSETRON HYDROCHLORIDE
     Route: 065
  14. 5-AMINOSALICYLIC ACID [Concomitant]
     Active Substance: AMINOSALICYLIC ACID
     Indication: INFLAMMATORY BOWEL DISEASE
     Route: 048
  15. SINGULAIR [Concomitant]
     Active Substance: MONTELUKAST SODIUM
     Route: 065
  16. ALBUTEROL. [Concomitant]
     Active Substance: ALBUTEROL
     Route: 065
  17. PROBIOTICS [Concomitant]
     Active Substance: PROBIOTICS NOS
     Route: 065
  18. VITAMIN B12 [Concomitant]
     Active Substance: CYANOCOBALAMIN
     Route: 065
  19. PREDNISONE. [Concomitant]
     Active Substance: PREDNISONE
     Route: 065

REACTIONS (1)
  - Lupus-like syndrome [Not Recovered/Not Resolved]

NARRATIVE: CASE EVENT DATE: 20150421
